FAERS Safety Report 5092642-8 (Version None)
Quarter: 2006Q3

REPORT INFORMATION
  Report Type: 
  Country: None (occurrence: None)
  Receive Date: 20060830
  Receipt Date: 20060823
  Transmission Date: 20061208
  Serious: Yes (Hospitalization)
  Sender: FDA-Public Use
  Company Number: US-BAYER-200615216BWH

PATIENT
  Age: 74 Year
  Sex: Male
  Weight: 84 kg

DRUGS (13)
  1. SORAFENIB OR PLACEBO [Suspect]
     Indication: METASTATIC MALIGNANT MELANOMA
     Dosage: TOTAL DAILY DOSE: 800 MG  UNIT DOSE: 200 MG
     Route: 048
     Dates: start: 20050901
  2. DTIC-DOME [Suspect]
     Indication: METASTATIC MALIGNANT MELANOMA
     Dosage: UNIT DOSE: 1000 MG/M2
     Route: 042
     Dates: start: 20050901
  3. LEXAPRO [Concomitant]
     Indication: DEPRESSION
     Route: 048
     Dates: start: 20060627
  4. LOMOTIL [Concomitant]
     Indication: DIARRHOEA
     Dosage: TOTAL DAILY DOSE: 15 MG
     Route: 048
     Dates: start: 20060516
  5. FLOMAX [Concomitant]
     Indication: PROSTATE EXAMINATION ABNORMAL
     Dosage: TOTAL DAILY DOSE: 0.4 MG
     Route: 048
     Dates: start: 20060608
  6. AMBIEN [Concomitant]
     Indication: INSOMNIA
     Route: 048
     Dates: start: 20060608
  7. IMODIUM [Concomitant]
     Indication: DIARRHOEA
     Route: 048
     Dates: start: 20060426
  8. CENTRUM [Concomitant]
     Indication: MEDICAL DIET
     Route: 048
     Dates: start: 20060401
  9. AFRIN [Concomitant]
     Route: 045
     Dates: start: 20050922
  10. ASPIRIN [Concomitant]
     Indication: CORONARY ARTERY DISEASE
     Dosage: TOTAL DAILY DOSE: 325 MG
     Route: 048
     Dates: start: 19970101
  11. ANTIVERT [Concomitant]
     Route: 048
     Dates: start: 20020101
  12. VASOTEC [Concomitant]
     Indication: HYPERTENSION
     Dosage: TOTAL DAILY DOSE: 40 MG
     Route: 048
     Dates: start: 19990101
  13. ZOCOR [Concomitant]
     Indication: HYPERLIPIDAEMIA
     Route: 048
     Dates: start: 19970101

REACTIONS (7)
  - ABDOMINAL PAIN [None]
  - ANXIETY [None]
  - CARDIAC MURMUR [None]
  - CHEST PAIN [None]
  - DIARRHOEA [None]
  - GASTRIC DISORDER [None]
  - VENTRICULAR EXTRASYSTOLES [None]
